FAERS Safety Report 14119851 (Version 1)
Quarter: 2017Q4

REPORT INFORMATION
  Report Type: Spontaneous
  Country: US (occurrence: None)
  Receive Date: 20171024
  Receipt Date: 20171024
  Transmission Date: 20180321
  Serious: No
  Sender: FDA-Public Use
  Company Number: None

PATIENT

DRUGS (5)
  1. NIRAPARIB [Suspect]
     Active Substance: NIRAPARIB
  2. CETUXIMAB. [Suspect]
     Active Substance: CETUXIMAB
  3. SILTUXIMAB [Suspect]
     Active Substance: SILTUXIMAB
  4. NILOTINIB [Suspect]
     Active Substance: NILOTINIB
  5. NERATINIB [Suspect]
     Active Substance: NERATINIB

REACTIONS (1)
  - Product name confusion [None]
